FAERS Safety Report 4361052-0 (Version None)
Quarter: 2004Q2

REPORT INFORMATION
  Report Type: 
  Country: None (occurrence: None)
  Receive Date: 20040519
  Receipt Date: 20040519
  Transmission Date: 20050107
  Serious: Yes (Life-Threatening, Hospitalization)
  Sender: FDA-Public Use
  Company Number: None

PATIENT
  Age: 76 Year
  Sex: Male
  Weight: 102.1 kg

DRUGS (3)
  1. CARDIZEM CD [Suspect]
  2. ATENTOLOL [Concomitant]
  3. TRIAMTERENE 37.5 MG /HTCZ 25 MG [Concomitant]

REACTIONS (3)
  - ARRHYTHMIA [None]
  - DIZZINESS [None]
  - EXTRASYSTOLES [None]
